FAERS Safety Report 4769789-6 (Version None)
Quarter: 2005Q3

REPORT INFORMATION
  Report Type: 
  Country: None (occurrence: None)
  Receive Date: 20050913
  Receipt Date: 20050905
  Transmission Date: 20060218
  Serious: Yes (Other)
  Sender: FDA-Public Use
  Company Number: 2005124271

PATIENT
  Sex: Male
  Weight: 80 kg

DRUGS (1)
  1. GENOTROPIN [Suspect]
     Indication: NON-SECRETORY ADENOMA OF PITUITARY
     Dosage: 0.5 MG (QD), SUBCUTANEOUS
     Route: 058
     Dates: start: 20040114

REACTIONS (1)
  - NEOPLASM RECURRENCE [None]
